FAERS Safety Report 5316730-3 (Version None)
Quarter: 2007Q2

REPORT INFORMATION
  Report Type: 
  Country: None (occurrence: None)
  Receive Date: 20070504
  Receipt Date: 20070430
  Transmission Date: 20071010
  Serious: Yes (Death)
  Sender: FDA-Public Use
  Company Number: 2007AP02551

PATIENT
  Age: 1 Year
  Sex: Male

DRUGS (1)
  1. DIPRIVAN [Suspect]
     Indication: INDUCTION OF ANAESTHESIA
     Route: 042

REACTIONS (2)
  - CONVULSION [None]
  - POSTOPERATIVE FEVER [None]
